FAERS Safety Report 25173325 (Version 2)
Quarter: 2025Q4

REPORT INFORMATION
  Report Type: Spontaneous
  Country: US (occurrence: US)
  Receive Date: 20250408
  Receipt Date: 20251204
  Transmission Date: 20260118
  Serious: Yes (Other)
  Sender: ARDELYX
  Company Number: US-ARDELYX-2025ARDX001456

PATIENT
  Sex: Female
  Weight: 58.957 kg

DRUGS (6)
  1. IBSRELA [Suspect]
     Active Substance: TENAPANOR HYDROCHLORIDE
     Indication: Irritable bowel syndrome
     Dosage: 50 MG, BID (50 MG, BOTTLE OF 60 TABLETS)
     Route: 048
     Dates: start: 2023, end: 202501
  2. IBSRELA [Suspect]
     Active Substance: TENAPANOR HYDROCHLORIDE
     Dosage: 50 MG, BID
     Route: 048
     Dates: start: 202505
  3. TRULANCE [Suspect]
     Active Substance: PLECANATIDE
     Indication: Irritable bowel syndrome
     Dosage: UNK
     Route: 065
     Dates: start: 202501, end: 202504
  4. YESINTEK [Suspect]
     Active Substance: USTEKINUMAB-KFCE
     Indication: Crohn^s disease
     Dosage: UNK
     Route: 065
     Dates: start: 202508, end: 202509
  5. YESINTEK [Suspect]
     Active Substance: USTEKINUMAB-KFCE
     Indication: Colitis ulcerative
  6. NITROFURANTOIN [Concomitant]
     Active Substance: NITROFURANTOIN
     Indication: Product used for unknown indication
     Dosage: UNK
     Route: 065

REACTIONS (6)
  - Rectal haemorrhage [Unknown]
  - Urinary tract infection [Unknown]
  - Skin lesion [Recovering/Resolving]
  - Pruritus [Recovering/Resolving]
  - Therapy interrupted [Recovered/Resolved]
  - Insurance issue [Recovered/Resolved]

NARRATIVE: CASE EVENT DATE: 20250101
